FAERS Safety Report 8339082-3 (Version None)
Quarter: 2012Q2

REPORT INFORMATION
  Report Type: 
  Country: None (occurrence: None)
  Receive Date: 20120502
  Receipt Date: 20120426
  Transmission Date: 20120825
  Serious: Yes (Death, Hospitalization, Other)
  Sender: FDA-Public Use
  Company Number: DAV-AE-MTX-12-37

PATIENT
  Age: 37 Year
  Sex: Male

DRUGS (4)
  1. METHOTREXATE [Suspect]
     Indication: PRODUCT USED FOR UNKNOWN INDICATION
     Dosage: 2 MONTHS PRIOR TO ADMISSION,   20 MG IV, 7 DAYS PRIOR TO ADMISSION
     Route: 042
  2. METHOTREXATE [Suspect]
     Indication: PRODUCT USED FOR UNKNOWN INDICATION
     Dosage: 2 MONTHS PRIOR TO ADMISSION,   20 MG IV, 7 DAYS PRIOR TO ADMISSION
     Route: 042
  3. TRIMETHOPRIM/SULFAMETHOXASOLE (IMMEDIATELY PRIOR TO ADMISSION) [Concomitant]
  4. AZITHROMYCIN (IMMEDIATELY PRIOR TO ADMISSION) [Concomitant]

REACTIONS (21)
  - MUCOSAL INFLAMMATION [None]
  - DYSPNOEA [None]
  - DIARRHOEA [None]
  - BACK PAIN [None]
  - TENDERNESS [None]
  - DYSPHAGIA [None]
  - RENAL FAILURE ACUTE [None]
  - STEVENS-JOHNSON SYNDROME [None]
  - HEPATITIS ACUTE [None]
  - CONDITION AGGRAVATED [None]
  - FEBRILE NEUTROPENIA [None]
  - HYPOTENSION [None]
  - NECROSIS [None]
  - ERYTHEMA [None]
  - ODYNOPHAGIA [None]
  - TOXICITY TO VARIOUS AGENTS [None]
  - PSORIASIS [None]
  - SELF-MEDICATION [None]
  - ORAL MUCOSA EROSION [None]
  - FACE OEDEMA [None]
  - PANCYTOPENIA [None]
